FAERS Safety Report 5701824-0 (Version None)
Quarter: 2008Q2

REPORT INFORMATION
  Report Type: 
  Country: None (occurrence: None)
  Receive Date: 20080408
  Receipt Date: 20080204
  Transmission Date: 20081010
  Serious: Yes (Hospitalization)
  Sender: FDA-Public Use
  Company Number: 2008AL001945

PATIENT
  Age: 86 Year
  Sex: Female

DRUGS (6)
  1. ACETAMINOPHEN + CODEINE PHOSPHATE ORAL SOULTION USP, 120 MG/12 MG PER [Suspect]
     Indication: ANALGESIA
     Dosage: PO
     Route: 048
     Dates: start: 20071215, end: 20071216
  2. ATENOLOL [Concomitant]
  3. LISINOPRIL [Concomitant]
  4. SIMVASTATIN [Concomitant]
  5. PARACETAMOL [Concomitant]
  6. WARFARIN SODIUM [Concomitant]

REACTIONS (4)
  - CONFUSIONAL STATE [None]
  - DIZZINESS [None]
  - INTERNATIONAL NORMALISED RATIO INCREASED [None]
  - MALAISE [None]
